FAERS Safety Report 22230649 (Version 1)
Quarter: 2023Q2

REPORT INFORMATION
  Report Type: Spontaneous
  Country: IR (occurrence: IR)
  Receive Date: 20230420
  Receipt Date: 20230420
  Transmission Date: 20230721
  Serious: Yes (Death, Other)
  Sender: FDA-Public Use
  Company Number: IR-SLATE RUN PHARMACEUTICALS-23IR001555

PATIENT

DRUGS (7)
  1. VANCOMYCIN HYDROCHLORIDE [Suspect]
     Active Substance: VANCOMYCIN HYDROCHLORIDE
     Indication: Antibiotic therapy
     Dosage: UNK
  2. MEROPENEM [Concomitant]
     Active Substance: MEROPENEM
     Indication: Antibiotic therapy
  3. ACYCLOVIR [Concomitant]
     Active Substance: ACYCLOVIR
     Indication: Antiviral treatment
  4. CORTICOSTEROID NOS [Concomitant]
     Active Substance: CORTICOSTEROID NOS
     Indication: Product used for unknown indication
  5. IMMUNOGLOBULINS [Concomitant]
     Indication: Product used for unknown indication
  6. MIDAZOLAM [Concomitant]
     Active Substance: MIDAZOLAM
     Indication: Seizure
  7. DEPAKENE [Concomitant]
     Active Substance: VALPROIC ACID
     Indication: Seizure

REACTIONS (3)
  - COVID-19 [Fatal]
  - Loss of consciousness [Unknown]
  - Brain death [Unknown]
